FAERS Safety Report 4725832-1 (Version None)
Quarter: 2005Q3

REPORT INFORMATION
  Report Type: 
  Country: None (occurrence: None)
  Receive Date: 20050722
  Receipt Date: 20050722
  Transmission Date: 20060218
  Serious: Yes (Life-Threatening, Disabling)
  Sender: FDA-Public Use
  Company Number: None

PATIENT
  Age: 58 Year
  Sex: Female
  Weight: 58.9676 kg

DRUGS (2)
  1. PREDNISONE [Suspect]
     Indication: ADRENOCORTICAL INSUFFICIENCY CHRONIC
  2. HYDROCORTISONE [Suspect]

REACTIONS (6)
  - BLOOD PRESSURE INCREASED [None]
  - DISTURBANCE IN ATTENTION [None]
  - FEELING ABNORMAL [None]
  - INSOMNIA [None]
  - NERVOUS SYSTEM DISORDER [None]
  - PARAESTHESIA [None]
